FAERS Safety Report 6405035-5 (Version None)
Quarter: 2009Q4

REPORT INFORMATION
  Report Type: 
  Country: None (occurrence: None)
  Receive Date: 20091019
  Receipt Date: 20091006
  Transmission Date: 20100525
  Serious: Yes (Hospitalization)
  Sender: FDA-Public Use
  Company Number: US-BRISTOL-MYERS SQUIBB COMPANY-14772339

PATIENT
  Age: 64 Year
  Sex: Male

DRUGS (6)
  1. APIXABAN [Suspect]
     Indication: THROMBOSIS PROPHYLAXIS
     Dosage: INTERRUPTED ON 04SEP09
     Route: 048
     Dates: start: 20081203
  2. WARFARIN SODIUM [Suspect]
     Indication: THROMBOSIS PROPHYLAXIS
     Dosage: INTERRUPTED ON 04SEP09
     Route: 048
     Dates: start: 20081203
  3. PLACEBO [Suspect]
     Indication: THROMBOSIS PROPHYLAXIS
     Dosage: INTERRUPTED ON 04SEP09
     Route: 048
     Dates: start: 20081203
  4. METOPROLOL [Concomitant]
     Dates: start: 20061001
  5. LISINOPRIL [Concomitant]
     Dates: start: 20070101
  6. FUROSEMIDE [Concomitant]
     Dates: start: 20030101

REACTIONS (1)
  - VASCULAR PSEUDOANEURYSM [None]
